FAERS Safety Report 4582093-4 (Version None)
Quarter: 2005Q1

REPORT INFORMATION
  Report Type: 
  Country: None (occurrence: None)
  Receive Date: 20050119
  Receipt Date: 20031117
  Transmission Date: 20050727
  Serious: Yes (Other)
  Sender: FDA-Public Use
  Company Number: A03200302783

PATIENT
  Age: 78 Year
  Sex: Female
  Weight: 63.9572 kg

DRUGS (1)
  1. PLAVIX [Suspect]
     Indication: CEREBROVASCULAR ACCIDENT PROPHYLAXIS
     Dosage: 75 MG QD - ORAL
     Route: 048
     Dates: start: 20031108, end: 20031116

REACTIONS (6)
  - CEREBROVASCULAR ACCIDENT [None]
  - DEHYDRATION [None]
  - FEELING ABNORMAL [None]
  - HYPERVENTILATION [None]
  - HYPOAESTHESIA [None]
  - MYALGIA [None]
